FAERS Safety Report 4674390-9 (Version None)
Quarter: 2005Q2

REPORT INFORMATION
  Report Type: 
  Country: None (occurrence: None)
  Receive Date: 20050524
  Receipt Date: 20050516
  Transmission Date: 20051028
  Serious: Yes (Other)
  Sender: FDA-Public Use
  Company Number: US-2005-007883

PATIENT
  Age: 66 Year
  Sex: Female

DRUGS (24)
  1. CLIMARA [Suspect]
     Indication: MENOPAUSAL SYMPTOMS
     Dosage: UNK MG/D,CONT, TRANSDERMAL
     Route: 062
  2. ESTROGEN NOS (ESTROGEN NOS) [Suspect]
     Indication: MENOPAUSAL SYMPTOMS
  3. MEDROXYPROGESTERONE ACETATE [Suspect]
     Indication: MENOPAUSAL SYMPTOMS
  4. PREMARIN [Suspect]
     Indication: MENOPAUSAL SYMPTOMS
     Dates: start: 19910101
  5. CYCRIN [Suspect]
     Indication: MENOPAUSAL SYMPTOMS
  6. AYGESTIN [Suspect]
     Indication: MENOPAUSAL SYMPTOMS
  7. PREMPRO [Suspect]
     Indication: MENOPAUSAL SYMPTOMS
  8. PREMPHASE 14/14 [Suspect]
     Indication: MENOPAUSAL SYMPTOMS
  9. PROVERA [Suspect]
     Indication: MENOPAUSAL SYMPTOMS
     Dates: start: 19910101
  10. FEMHRT [Suspect]
     Indication: MENOPAUSAL SYMPTOMS
  11. VAGIFEM [Suspect]
     Indication: MENOPAUSAL SYMPTOMS
  12. ACTIVELLA [Suspect]
     Indication: MENOPAUSAL SYMPTOMS
  13. ESTRADIOL [Suspect]
     Indication: MENOPAUSAL SYMPTOMS
  14. CENESTIN [Suspect]
     Indication: MENOPAUSAL SYMPTOMS
  15. ESTRADERM [Suspect]
     Indication: MENOPAUSAL SYMPTOMS
  16. VIVELLE [Suspect]
     Indication: MENOPAUSAL SYMPTOMS
  17. COMBIPATCH [Suspect]
     Indication: MENOPAUSAL SYMPTOMS
  18. ESTRACE [Suspect]
     Indication: MENOPAUSAL SYMPTOMS
  19. ESTRATEST [Suspect]
     Indication: MENOPAUSAL SYMPTOMS
  20. ESTRATAB [Suspect]
     Indication: MENOPAUSAL SYMPTOMS
  21. OGEN [Suspect]
     Indication: MENOPAUSAL SYMPTOMS
  22. ESTROPIPATE [Suspect]
     Indication: MENOPAUSAL SYMPTOMS
  23. ORTHO TRI-CYCLEN [Suspect]
     Indication: MENOPAUSAL SYMPTOMS
  24. ORTHO-PREFEST (NORGESTIMATE, ESTRADIOL) [Suspect]
     Indication: MENOPAUSAL SYMPTOMS

REACTIONS (7)
  - ANXIETY [None]
  - BEREAVEMENT REACTION [None]
  - BREAST CANCER IN SITU [None]
  - OESTROGEN RECEPTOR ASSAY POSITIVE [None]
  - PAIN [None]
  - PROGESTERONE RECEPTOR ASSAY POSITIVE [None]
  - PSYCHIATRIC SYMPTOM [None]
